FAERS Safety Report 9781733 (Version 2)
Quarter: 2014Q1

REPORT INFORMATION
  Report Type: Spontaneous
  Country: US (occurrence: US)
  Receive Date: 20131224
  Receipt Date: 20140228
  Transmission Date: 20141002
  Serious: Yes (Other)
  Sender: FDA-Public Use
  Company Number: US-AMGEN-USASP2013090044

PATIENT
  Age: 47 Year
  Sex: Male
  Weight: 102.4 kg

DRUGS (2)
  1. ENBREL [Suspect]
     Indication: PSORIASIS
     Dosage: 50 MG, QWK
     Route: 058
     Dates: start: 201301, end: 201308
  2. STELARA [Concomitant]
     Indication: PSORIASIS
     Dosage: 90 MG, ONLY 1 INJECTION
     Route: 058
     Dates: start: 201308, end: 201308

REACTIONS (1)
  - Mantle cell lymphoma stage IV [Not Recovered/Not Resolved]
